FAERS Safety Report 10205544 (Version 1)
Quarter: 2014Q2

REPORT INFORMATION
  Report Type: Spontaneous
  Country: IN (occurrence: IN)
  Receive Date: 20140529
  Receipt Date: 20140529
  Transmission Date: 20141212
  Serious: Yes (Disabling, Other)
  Sender: FDA-Public Use
  Company Number: IN-ACTAVIS-2014-11629

PATIENT
  Age: 55 Year
  Sex: Male

DRUGS (4)
  1. OXALIPLATIN (UNKNOWN) [Suspect]
     Indication: COLON CANCER
     Dosage: 85 MG/M2, UNKNOWN (120 MIN) DAY 1
     Route: 042
  2. FLUOROURACIL (UNKNOWN) [Suspect]
     Indication: COLON CANCER
     Dosage: 600 MG/M2, UNKNOWN - OVER 22 HRS
     Route: 042
  3. FLUOROURACIL (UNKNOWN) [Suspect]
     Dosage: 400 MG/M2, UNKNOWN - OVER 2-4 MIN
     Route: 042
  4. LEUCOVORIN                         /00566702/ [Concomitant]
     Indication: COLON CANCER
     Dosage: 200 MG/M2, UNKNOWN - OVER 120 MIN
     Route: 042

REACTIONS (1)
  - Leukoencephalopathy [Recovered/Resolved]
